FAERS Safety Report 4674937-2 (Version None)
Quarter: 2005Q2

REPORT INFORMATION
  Report Type: 
  Country: None (occurrence: None)
  Receive Date: 20050526
  Receipt Date: 20050517
  Transmission Date: 20051028
  Serious: Yes (Hospitalization)
  Sender: FDA-Public Use
  Company Number: P200500008

PATIENT
  Age: 79 Year
  Sex: Male
  Weight: 117.9 kg

DRUGS (20)
  1. PLENAXIS [Suspect]
     Dosage: SEE IMAGE
     Route: 030
     Dates: start: 20040902, end: 20040902
  2. PLENAXIS [Suspect]
     Dosage: SEE IMAGE
     Route: 030
     Dates: start: 20040917, end: 20040917
  3. PLENAXIS [Suspect]
     Dosage: SEE IMAGE
     Route: 030
     Dates: start: 20041025, end: 20041025
  4. PLENAXIS [Suspect]
     Dosage: SEE IMAGE
     Route: 030
     Dates: start: 20041123, end: 20041123
  5. PLENAXIS [Suspect]
     Dosage: SEE IMAGE
     Route: 030
     Dates: start: 20041221, end: 20041221
  6. PLENAXIS [Suspect]
     Dosage: SEE IMAGE
     Route: 030
     Dates: start: 20050118, end: 20050118
  7. PLENAXIS [Suspect]
     Dosage: SEE IMAGE
     Route: 030
     Dates: start: 20050217, end: 20050217
  8. PROSCAR [Concomitant]
  9. CASODEX (BICALUTAMIDE0 [Concomitant]
  10. OCUVITE (RETINOL, ASCORBIC ACID, TOCOPHEROL) [Concomitant]
  11. ALBUTEROL 9SALBUTAMOL) [Concomitant]
  12. LISINOPRIL [Concomitant]
  13. PREDNISONE [Concomitant]
  14. PERCOCET [Concomitant]
  15. HYDROCODONE BITARTRATE [Concomitant]
  16. PEPCID (FAMOTIDINE)SCAL 500-D(CALCIUM, COLECALCIFEROL) [Concomitant]
  17. NPH INSULIN [Concomitant]
  18. NAPROSYN [Concomitant]
  19. HEPARIN [Concomitant]
  20. ZOMETA [Concomitant]

REACTIONS (5)
  - APPENDICITIS PERFORATED [None]
  - FLUSHING [None]
  - HYPOTENSION [None]
  - METASTASES TO SPINE [None]
  - SYNCOPE VASOVAGAL [None]
